FAERS Safety Report 7066456-3 (Version None)
Quarter: 2010Q4

REPORT INFORMATION
  Report Type: 
  Country: None (occurrence: None)
  Receive Date: 20101027
  Receipt Date: 20100517
  Transmission Date: 20110411
  Serious: No
  Sender: FDA-Public Use
  Company Number: US-WYE-H15206010

PATIENT
  Age: 52 Year
  Sex: Female
  Weight: 61.29 kg

DRUGS (6)
  1. PREMPRO [Suspect]
     Indication: HORMONE REPLACEMENT THERAPY
     Route: 048
     Dates: start: 20100301
  2. PREMPRO [Suspect]
     Dosage: BEGAN TAKING EVERYOTHER DAY
     Route: 048
     Dates: start: 20100101
  3. PREMPRO [Suspect]
     Route: 048
     Dates: start: 20100101
  4. PREMPRO [Suspect]
     Dosage: .45/1.5MG DAILY
     Route: 048
     Dates: start: 20100401
  5. ALLEGRA [Concomitant]
  6. AMBIEN [Concomitant]

REACTIONS (11)
  - ABDOMINAL DISTENSION [None]
  - ARTHRITIS [None]
  - BREAST TENDERNESS [None]
  - CONDITION AGGRAVATED [None]
  - DIZZINESS [None]
  - HEADACHE [None]
  - JOINT STIFFNESS [None]
  - NAUSEA [None]
  - PAIN [None]
  - VAGINAL HAEMORRHAGE [None]
  - VULVOVAGINAL DISCOMFORT [None]
